FAERS Safety Report 10270974 (Version 1)
Quarter: 2014Q3

REPORT INFORMATION
  Report Type: Spontaneous
  Country: CL (occurrence: CL)
  Receive Date: 20140701
  Receipt Date: 20140701
  Transmission Date: 20150326
  Serious: Yes (Hospitalization)
  Sender: FDA-Public Use
  Company Number: CL-GLAXOSMITHKLINE-B1009069A

PATIENT
  Age: 38 Year
  Sex: Female

DRUGS (4)
  1. VALPROIC ACID. [Concomitant]
     Active Substance: VALPROIC ACID
     Indication: BIPOLAR I DISORDER
     Dosage: 500MG PER DAY
     Route: 065
  2. INSULIN [Concomitant]
     Active Substance: INSULIN NOS
     Indication: TYPE 1 DIABETES MELLITUS
     Route: 065
  3. QUETIAPINE [Concomitant]
     Active Substance: QUETIAPINE
     Indication: BIPOLAR DISORDER
     Dosage: 25MG PER DAY
     Route: 048
  4. LAMOTRIGINE. [Suspect]
     Active Substance: LAMOTRIGINE
     Indication: BIPOLAR DISORDER
     Dosage: 100MG PER DAY
     Route: 048

REACTIONS (8)
  - Meningitis aseptic [Recovering/Resolving]
  - Orbital oedema [Unknown]
  - Rash [Unknown]
  - Aphthous stomatitis [Unknown]
  - Confusional state [Unknown]
  - Pyrexia [Unknown]
  - Liver function test abnormal [Unknown]
  - Leukocytosis [Unknown]
